FAERS Safety Report 18261145 (Version 1)
Quarter: 2020Q3

REPORT INFORMATION
  Report Type: Spontaneous
  Country: US (occurrence: US)
  Receive Date: 20200501
  Receipt Date: 20200501
  Transmission Date: 20201103
  Serious: Yes (Death)
  Sender: FDA-Public Use
  Company Number: None

PATIENT
  Age: 7 Decade
  Sex: Male

DRUGS (5)
  1. THYMOSIN [Suspect]
     Active Substance: THYMOSIN
     Indication: COVID-19
  2. METHYLPREDNISOLONE. [Suspect]
     Active Substance: METHYLPREDNISOLONE
     Indication: COVID-19
  3. KELIZHI (LOPINAVIR\RITONAVIR) [Suspect]
     Active Substance: LOPINAVIR\RITONAVIR
     Indication: COVID-19
  4. INTERFERON ALFA?2B [Suspect]
     Active Substance: INTERFERON ALFA-2B
     Indication: COVID-19
  5. IMMUNOGLOBULINS INTRAVENOUS (HUMAN) [Suspect]
     Active Substance: HUMAN IMMUNOGLOBULIN G
     Indication: COVID-19

REACTIONS (1)
  - Off label use [None]
